FAERS Safety Report 7449246-9 (Version None)
Quarter: 2011Q2

REPORT INFORMATION
  Report Type: 
  Country: None (occurrence: None)
  Receive Date: 20110502
  Receipt Date: 20110414
  Transmission Date: 20111010
  Serious: Yes (Life-Threatening, Hospitalization, Other)
  Sender: FDA-Public Use
  Company Number: US-BAYER-201040879NA

PATIENT
  Sex: Female
  Weight: 79.819 kg

DRUGS (8)
  1. FROVA [Concomitant]
     Dosage: UNK UNK, PRN
     Route: 048
     Dates: start: 20050624
  2. YASMIN [Suspect]
     Indication: CONTRACEPTION
     Dosage: UNK
     Route: 048
     Dates: start: 20040201, end: 20040701
  3. PHENERGAN AND CHLORAL HYDRATE [Concomitant]
     Dosage: UNK
     Dates: start: 20050705
  4. HYDROCODONE BITARTRATE [Concomitant]
     Dosage: UNK
     Route: 048
     Dates: start: 20050709
  5. DILAUDID [Concomitant]
     Dosage: UNK
     Dates: start: 20050705
  6. VIGAMOX [Concomitant]
     Dosage: 0.5 %, UNK
     Route: 047
     Dates: start: 20050518
  7. PREDNISONE [Concomitant]
     Dosage: UNK
     Route: 048
     Dates: start: 20050624
  8. VICODIN [Concomitant]
     Dosage: UNK UNK, PRN
     Route: 048
     Dates: start: 20050705

REACTIONS (2)
  - INTRACRANIAL VENOUS SINUS THROMBOSIS [None]
  - CEREBROVASCULAR DISORDER [None]
